FAERS Safety Report 10066502 (Version 1)
Quarter: 2014Q2

REPORT INFORMATION
  Report Type: Spontaneous
  Country: US (occurrence: US)
  Receive Date: 20140408
  Receipt Date: 20140408
  Transmission Date: 20141212
  Serious: Yes (Other)
  Sender: FDA-Public Use
  Company Number: US-TEVA-473957USA

PATIENT
  Sex: Female

DRUGS (2)
  1. VENLAFAXINE [Suspect]
  2. VENLAFAXINE HYDROCHLORIDE [Suspect]

REACTIONS (3)
  - Vascular graft [Unknown]
  - Haemorrhage [Not Recovered/Not Resolved]
  - Cardiac disorder [Unknown]
